FAERS Safety Report 4478171-0 (Version None)
Quarter: 2004Q3

REPORT INFORMATION
  Report Type: 
  Country: None (occurrence: None)
  Receive Date: 20040923
  Receipt Date: 20040722
  Transmission Date: 20050211
  Serious: No
  Sender: FDA-Public Use
  Company Number: USA040773341

PATIENT
  Age: 75 Year
  Sex: Female
  Weight: 102 kg

DRUGS (7)
  1. FORTEO [Suspect]
     Indication: BODY HEIGHT DECREASED
     Dosage: 20 UG/1 DAY
     Dates: end: 20040720
  2. VERAPAMIL [Concomitant]
  3. FUROSEMIDE [Concomitant]
  4. CALTRATE (CALCIUM CARBONATE) [Concomitant]
  5. SPIRONOLACTONE [Concomitant]
  6. MULTIVITAMIN [Concomitant]
  7. ACTONEL [Concomitant]

REACTIONS (3)
  - COUGH [None]
  - INCREASED UPPER AIRWAY SECRETION [None]
  - INJECTION SITE HAEMORRHAGE [None]
